FAERS Safety Report 8854193 (Version 1)
Quarter: 2012Q4

REPORT INFORMATION
  Report Type: 
  Country: JP (occurrence: JP)
  Receive Date: 20121022
  Receipt Date: 20121022
  Transmission Date: 20130627
  Serious: Yes (Hospitalization, Other)
  Sender: FDA-Public Use
  Company Number: JP-ELI_LILLY_AND_COMPANY-JP201210004491

PATIENT
  Age: 44 Year
  Sex: Female
  Weight: 57 kg

DRUGS (6)
  1. ZYPREXA [Suspect]
     Indication: NAUSEA
     Dosage: 5 mg, UNK
     Route: 048
     Dates: start: 20120824, end: 20120830
  2. ZYPREXA [Suspect]
     Dosage: 5 mg, UNK
     Route: 048
     Dates: start: 20120913, end: 20120919
  3. ALIMTA [Concomitant]
     Indication: NON-SMALL CELL LUNG CANCER
     Dosage: 756 mg, other
     Route: 042
     Dates: start: 20120822, end: 20120914
  4. CISPLATIN [Concomitant]
     Indication: NON-SMALL CELL LUNG CANCER
     Dosage: 115 mg, other
     Route: 042
     Dates: start: 20120822, end: 20120914
  5. PANVITAN [Concomitant]
     Indication: PROPHYLAXIS
     Dosage: 1.0 g, qd
     Route: 048
     Dates: start: 20120809, end: 20121002
  6. VITAMIN B12 [Concomitant]

REACTIONS (6)
  - Vomiting [Recovering/Resolving]
  - Deep vein thrombosis [Not Recovered/Not Resolved]
  - Pulmonary embolism [Not Recovered/Not Resolved]
  - White blood cell count decreased [Unknown]
  - Platelet count decreased [Unknown]
  - Off label use [Unknown]
